FAERS Safety Report 16439583 (Version 1)
Quarter: 2019Q2

REPORT INFORMATION
  Report Type: Report from Study
  Country: CA (occurrence: CA)
  Receive Date: 20190617
  Receipt Date: 20190617
  Transmission Date: 20190711
  Serious: Yes (Other)
  Sender: FDA-Public Use
  Company Number: CA-BAYER-2019-111580

PATIENT
  Age: 32 Year
  Sex: Female

DRUGS (2)
  1. MIRENA [Suspect]
     Active Substance: LEVONORGESTREL
     Indication: CONTRACEPTION
     Dosage: UNK
     Route: 015
     Dates: start: 20190523, end: 20190529
  2. MIRENA [Suspect]
     Active Substance: LEVONORGESTREL
     Indication: CONTRACEPTION
     Dosage: 20 MCG/24HR, CONT
     Route: 015
     Dates: start: 20190523, end: 20190529

REACTIONS (5)
  - Pregnancy with contraceptive device [None]
  - Abortion spontaneous [None]
  - Post abortion haemorrhage [None]
  - Device expulsion [Recovered/Resolved]
  - Medical device monitoring error [None]

NARRATIVE: CASE EVENT DATE: 20190529
